FAERS Safety Report 9778136 (Version 1)
Quarter: 2013Q4

REPORT INFORMATION
  Report Type: Spontaneous
  Country: US (occurrence: US)
  Receive Date: 20131223
  Receipt Date: 20131223
  Transmission Date: 20140711
  Serious: Yes (Hospitalization)
  Sender: FDA-Public Use
  Company Number: US-JNJFOC-20131209121

PATIENT
  Sex: Female
  Weight: 74.84 kg

DRUGS (3)
  1. INVEGA [Suspect]
     Indication: TOURETTE^S DISORDER
     Route: 048
  2. INVEGA [Suspect]
     Indication: TOURETTE^S DISORDER
     Route: 048
  3. EFFEXOR [Suspect]
     Indication: PRODUCT USED FOR UNKNOWN INDICATION
     Route: 065
     Dates: end: 2013

REACTIONS (8)
  - Weight increased [Not Recovered/Not Resolved]
  - Blood triglycerides increased [Unknown]
  - Blood glucose increased [Unknown]
  - Blood cholesterol increased [Unknown]
  - Withdrawal syndrome [Recovered/Resolved]
  - Adverse event [Unknown]
  - Influenza like illness [Recovered/Resolved]
  - Off label use [Unknown]
